FAERS Safety Report 4591221-6 (Version None)
Quarter: 2005Q1

REPORT INFORMATION
  Report Type: 
  Country: None (occurrence: None)
  Receive Date: 20050224
  Receipt Date: 20050224
  Transmission Date: 20050727
  Serious: No
  Sender: FDA-Public Use
  Company Number: None

PATIENT
  Age: 18 Year
  Sex: Female
  Weight: 122.4712 kg

DRUGS (2)
  1. ESKALITH [Suspect]
     Indication: BIPOLAR DISORDER
     Dosage: 675 MG DAILY
  2. KLONOPIN [Suspect]
     Indication: GENERALISED ANXIETY DISORDER
     Dosage: 1.5 MG BID

REACTIONS (5)
  - DYSARTHRIA [None]
  - EXOPHTHALMOS [None]
  - FEELING ABNORMAL [None]
  - MYDRIASIS [None]
  - SEDATION [None]
